FAERS Safety Report 4864197-1 (Version None)
Quarter: 2005Q4

REPORT INFORMATION
  Report Type: 
  Country: None (occurrence: None)
  Receive Date: 20051222
  Receipt Date: 20050923
  Transmission Date: 20060501
  Serious: Yes (Other)
  Sender: FDA-Public Use
  Company Number: DE-GILEAD-2005-0008723

PATIENT
  Sex: Male
  Weight: 61 kg

DRUGS (2)
  1. TRUVADA [Suspect]
     Route: 048
     Dates: start: 20050414, end: 20051012
  2. SUSTIVA [Concomitant]
     Indication: HIV INFECTION
     Dates: start: 20041021, end: 20051011

REACTIONS (2)
  - HEPATIC FAILURE [None]
  - SPLENOMEGALY [None]
